FAERS Safety Report 4599361-2 (Version None)
Quarter: 2005Q1

REPORT INFORMATION
  Report Type: 
  Country: None (occurrence: None)
  Receive Date: 20050302
  Receipt Date: 20050302
  Transmission Date: 20050727
  Serious: Yes (Other)
  Sender: FDA-Public Use
  Company Number: None

PATIENT
  Sex: Female

DRUGS (2)
  1. NEURONTIN [Suspect]
     Indication: MAJOR DEPRESSION
     Dosage: 800 MG QID
  2. NEURONTIN [Suspect]
     Indication: PANIC DISORDER
     Dosage: 800 MG QID

REACTIONS (1)
  - HEADACHE [None]
